FAERS Safety Report 6514031 (Version 4)
Quarter: 2016Q1

REPORT INFORMATION
  Report Type: Spontaneous
  Country: FR (occurrence: FR)
  Receive Date: 20071224
  Receipt Date: 20160205
  Transmission Date: 20160526
  Serious: Yes (Hospitalization, Congenital Anomaly, Other)
  Sender: FDA-Public Use
  Company Number: FR-BRISTOL-MYERS SQUIBB COMPANY-14023592

PATIENT
  Age: 0 Year
  Sex: Female
  Weight: 2.25 kg

DRUGS (2)
  1. GLUCOPHAGE [Suspect]
     Active Substance: METFORMIN HYDROCHLORIDE
     Indication: PRODUCT USED FOR UNKNOWN INDICATION
     Dosage: UNK
     Route: 064
     Dates: end: 20060518
  2. AVONEX [Suspect]
     Active Substance: INTERFERON BETA-1A
     Indication: PRODUCT USED FOR UNKNOWN INDICATION
     Dosage: 30 ?G, QWK
     Route: 064
     Dates: end: 20060517

REACTIONS (6)
  - Single umbilical artery [Unknown]
  - Foetal exposure during pregnancy [Unknown]
  - Foetal growth restriction [Unknown]
  - Renal failure [Unknown]
  - Macrosomia [Unknown]
  - Premature baby [Unknown]

NARRATIVE: CASE EVENT DATE: 20060531
